FAERS Safety Report 7386058-9 (Version None)
Quarter: 2011Q1

REPORT INFORMATION
  Report Type: 
  Country: None (occurrence: None)
  Receive Date: 20110331
  Receipt Date: 20110323
  Transmission Date: 20110831
  Serious: Yes (Other)
  Sender: FDA-Public Use
  Company Number: US-AMGEN-USASP2011015663

PATIENT
  Age: 38 Year
  Sex: Female

DRUGS (9)
  1. PREDNISONE [Concomitant]
  2. K-PHOS NEUTRAL [Concomitant]
  3. TACROLIMUS [Concomitant]
  4. BUPROPION HYDROCHLORIDE [Concomitant]
  5. ASPIRIN [Concomitant]
  6. METOPROLOL [Concomitant]
  7. SENSIPAR [Suspect]
     Indication: HYPERPARATHYROIDISM SECONDARY
     Dosage: 30 MG, QD
  8. MYCOPHENOLATE MOFETIL [Concomitant]
  9. EFFEXOR [Concomitant]

REACTIONS (2)
  - RENAL AND PANCREAS TRANSPLANT [None]
  - BLOOD PARATHYROID HORMONE INCREASED [None]
